FAERS Safety Report 9732973 (Version 3)
Quarter: 2013Q4

REPORT INFORMATION
  Report Type: Report from Study
  Country: BE (occurrence: BE)
  Receive Date: 20131205
  Receipt Date: 20131213
  Transmission Date: 20140711
  Serious: Yes (Hospitalization)
  Sender: FDA-Public Use
  Company Number: BE-BAYER-2013-115289

PATIENT
  Age: 67 Year
  Sex: Male
  Weight: 102.4 kg

DRUGS (8)
  1. REGORAFENIB [Suspect]
     Indication: COLORECTAL CANCER
     Dosage: 160 MG, QD (ONCE A DAY FOR 3 WEEKS EVERY 4 WEEKS)
     Route: 048
     Dates: start: 20130917, end: 20130920
  2. REGORAFENIB [Suspect]
     Indication: COLORECTAL CANCER
     Dosage: 120 MG, QD
     Route: 048
     Dates: start: 20131119, end: 20131124
  3. DUROGESIC [Concomitant]
     Indication: PAIN
     Dosage: 50 ?G, TID
     Route: 048
     Dates: start: 20130906
  4. XANAX RETARD [Concomitant]
     Indication: INSOMNIA
     Dosage: 1 MG, QD
     Route: 048
     Dates: start: 20130902
  5. QUETIAPINE [Concomitant]
     Indication: INSOMNIA
     Dosage: 100 MG, QD
     Route: 048
     Dates: start: 20130119
  6. QUETIAPINE [Concomitant]
     Indication: ANXIETY
  7. PANTOPRAZOLE [Concomitant]
     Indication: DYSPEPSIA
     Dosage: 40 MG, QD
     Route: 048
     Dates: start: 20130809
  8. TAMSULOSIN [Concomitant]
     Indication: BENIGN PROSTATIC HYPERPLASIA
     Dosage: 4 MG, QD
     Route: 048

REACTIONS (2)
  - Tumour associated fever [Recovered/Resolved]
  - Fatigue [Not Recovered/Not Resolved]
